FAERS Safety Report 21745886 (Version 1)
Quarter: 2022Q4

REPORT INFORMATION
  Report Type: Spontaneous
  Country: FR (occurrence: FR)
  Receive Date: 20221219
  Receipt Date: 20221219
  Transmission Date: 20230113
  Serious: Yes (Disabling, Other)
  Sender: FDA-Public Use
  Company Number: FR-ADDMEDICA-2022000103

PATIENT
  Age: 14 Year
  Sex: Male

DRUGS (5)
  1. SIKLOS [Suspect]
     Active Substance: HYDROXYUREA
     Indication: Sickle cell anaemia with crisis
     Route: 048
     Dates: start: 201701
  2. SIKLOS [Suspect]
     Active Substance: HYDROXYUREA
     Indication: Sickle cell anaemia with crisis
     Route: 048
  3. SIKLOS [Suspect]
     Active Substance: HYDROXYUREA
     Indication: Sickle cell anaemia with crisis
     Dosage: OR 12 MG/KG/D
     Route: 048
  4. PENICILLIN V [Concomitant]
     Active Substance: PENICILLIN V
     Indication: Infection prophylaxis
     Route: 048
     Dates: start: 200708, end: 20220915
  5. FOLIC ACID [Concomitant]
     Active Substance: FOLIC ACID
     Indication: Haemolytic anaemia
     Route: 048
     Dates: start: 200708, end: 20220915

REACTIONS (6)
  - Blood viscosity increased [Unknown]
  - Retinal haemorrhage [Unknown]
  - Retinopathy [Unknown]
  - Tinnitus [Unknown]
  - Hypoacusis [Unknown]
  - Pain [Unknown]

NARRATIVE: CASE EVENT DATE: 20220101
